FAERS Safety Report 17419296 (Version 2)
Quarter: 2020Q1

REPORT INFORMATION
  Report Type: Spontaneous
  Country: GB (occurrence: GB)
  Receive Date: 20200214
  Receipt Date: 20200318
  Transmission Date: 20200409
  Serious: Yes (Hospitalization, Other)
  Sender: FDA-Public Use
  Company Number: GB-SA-2020SA035737

PATIENT
  Age: 27 Year
  Sex: Female

DRUGS (1)
  1. DUPILUMAB [Suspect]
     Active Substance: DUPILUMAB
     Indication: ECZEMA
     Dosage: UNK
     Route: 058
     Dates: start: 20181228, end: 20200124

REACTIONS (2)
  - Exposure during pregnancy [Unknown]
  - Heterotopic pregnancy [Unknown]

NARRATIVE: CASE EVENT DATE: 20200131
